FAERS Safety Report 10996227 (Version 3)
Quarter: 2015Q3

REPORT INFORMATION
  Report Type: Spontaneous
  Country: JP (occurrence: JP)
  Receive Date: 20150408
  Receipt Date: 20150901
  Transmission Date: 20151125
  Serious: Yes (Hospitalization)
  Sender: FDA-Public Use
  Company Number: JP-UCBSA-2015008352

PATIENT
  Age: 2 Year
  Sex: Male

DRUGS (8)
  1. KEPPRA [Suspect]
     Active Substance: LEVETIRACETAM
     Indication: EPILEPSY
     Dosage: 30 MG, ONCE DAILY (QD)
     Route: 048
     Dates: start: 20131008, end: 20131017
  2. KEPPRA [Suspect]
     Active Substance: LEVETIRACETAM
     Dosage: 70 MG, ONCE DAILY (QD)
     Route: 048
     Dates: start: 20131017, end: 20131025
  3. KEPPRA [Suspect]
     Active Substance: LEVETIRACETAM
     Dosage: 120MG DAILY
     Route: 048
     Dates: start: 20131025, end: 20131030
  4. MYSTAN [Concomitant]
     Active Substance: CLOBAZAM
     Indication: PRODUCT USED FOR UNKNOWN INDICATION
     Dosage: 0.5MG DAILY
     Route: 048
     Dates: start: 20140715
  5. TRICLORYL [Concomitant]
     Active Substance: TRICLOFOS SODIUM
     Indication: PRODUCT USED FOR UNKNOWN INDICATION
     Dosage: 5ML DAILY
     Route: 048
     Dates: start: 20150226
  6. SODIUM VALPROATE [Concomitant]
     Active Substance: VALPROATE SODIUM
     Indication: PRODUCT USED FOR UNKNOWN INDICATION
     Dosage: 300MG DAILY
     Route: 048
     Dates: start: 20130813
  7. PHENOBARBITAL. [Concomitant]
     Active Substance: PHENOBARBITAL
     Indication: PRODUCT USED FOR UNKNOWN INDICATION
     Dosage: 70MG DAILY
     Route: 048
     Dates: start: 20141016
  8. KEPPRA [Suspect]
     Active Substance: LEVETIRACETAM
     Dosage: 300MG DAILY
     Route: 048
     Dates: start: 20150226

REACTIONS (3)
  - Colitis ulcerative [Recovering/Resolving]
  - Haematochezia [Recovered/Resolved]
  - Off label use [Unknown]

NARRATIVE: CASE EVENT DATE: 20131008
